FAERS Safety Report 12077464 (Version 3)
Quarter: 2016Q3

REPORT INFORMATION
  Report Type: Spontaneous
  Country: FR (occurrence: FR)
  Receive Date: 20160215
  Receipt Date: 20160719
  Transmission Date: 20161109
  Serious: Yes (Life-Threatening, Hospitalization, Other)
  Sender: FDA-Public Use
  Company Number: FR-JNJFOC-20160204437

PATIENT
  Age: 28 Year
  Sex: Female
  Weight: 86 kg

DRUGS (31)
  1. IBUPROFEN. [Suspect]
     Active Substance: IBUPROFEN
     Route: 048
  2. XEROQUEL [Suspect]
     Active Substance: QUETIAPINE FUMARATE
     Indication: PRODUCT USED FOR UNKNOWN INDICATION
     Dosage: 300 MG 44 TABLETS.
     Route: 048
     Dates: start: 20160117, end: 20160117
  3. OMEPRAZOLE. [Suspect]
     Active Substance: OMEPRAZOLE
     Indication: PRODUCT USED FOR UNKNOWN INDICATION
     Route: 048
     Dates: start: 20160115, end: 20160117
  4. SULFARLEM [Suspect]
     Active Substance: ANETHOLTRITHION
     Indication: PRODUCT USED FOR UNKNOWN INDICATION
     Dosage: 25MG 150 TABLET.
     Route: 048
     Dates: start: 20160115, end: 20160117
  5. ETOMIDATE. [Concomitant]
     Active Substance: ETOMIDATE
     Indication: ALTERED STATE OF CONSCIOUSNESS
     Route: 065
  6. FLUIMUCIL [Concomitant]
     Active Substance: ACETYLCYSTEINE
     Indication: DISABILITY
     Route: 065
  7. IBUPROFEN. [Suspect]
     Active Substance: IBUPROFEN
     Indication: PRODUCT USED FOR UNKNOWN INDICATION
     Dosage: 400MG 12 TABLETS
     Route: 048
     Dates: start: 20160115, end: 20160117
  8. SPASFON LYOC [Suspect]
     Active Substance: PHLOROGLUCINOL
     Indication: PRODUCT USED FOR UNKNOWN INDICATION
     Dosage: 20 DF, ONE TIME DOSE.??80MG 20 TABLETS.
     Route: 048
     Dates: start: 20160117, end: 20160117
  9. DOLIPRANE [Suspect]
     Active Substance: ACETAMINOPHEN
     Indication: PRODUCT USED FOR UNKNOWN INDICATION
     Dosage: 1G 8 TABLETS.
     Route: 048
     Dates: start: 20160117, end: 20160117
  10. GARDENAL [Concomitant]
     Active Substance: PHENOBARBITAL
     Indication: STATUS EPILEPTICUS
     Dosage: MAINTAINANCE DOSE
     Route: 065
  11. ZYRTEC [Suspect]
     Active Substance: CETIRIZINE HYDROCHLORIDE
     Route: 048
  12. BACLOFEN. [Suspect]
     Active Substance: BACLOFEN
     Indication: PRODUCT USED FOR UNKNOWN INDICATION
     Dosage: 10MG 96 TABLETS.
     Route: 048
     Dates: start: 20160115, end: 20160117
  13. DAFLON [Suspect]
     Active Substance: DIOSMIN\HESPERIDIN
     Indication: PRODUCT USED FOR UNKNOWN INDICATION
     Dosage: (700 MG 85 TABLETS)
     Route: 048
     Dates: start: 20160115, end: 20160117
  14. NALTREXONE [Suspect]
     Active Substance: NALTREXONE
     Indication: PRODUCT USED FOR UNKNOWN INDICATION
     Dosage: 1400 MG, TOTAL (50 MG, 28 TABLETS)
     Route: 048
     Dates: start: 20160115, end: 20160117
  15. KETUM [Suspect]
     Active Substance: KETOPROFEN
     Indication: PRODUCT USED FOR UNKNOWN INDICATION
     Dosage: 900MG TOTAL (100MG 12 TABLETS)
     Route: 048
     Dates: start: 20160117, end: 20160117
  16. KETOPROFEN. [Suspect]
     Active Substance: KETOPROFEN
     Indication: PRODUCT USED FOR UNKNOWN INDICATION
     Dosage: 100MG 10 TABLETS
     Route: 048
     Dates: start: 20160115, end: 20160117
  17. PYOSTACINE [Suspect]
     Active Substance: PRISTINAMYCIN
     Indication: PRODUCT USED FOR UNKNOWN INDICATION
     Dosage: 500MG 20 TABLETS
     Route: 048
     Dates: start: 20160115, end: 20160117
  18. CELOCURIN [Concomitant]
     Active Substance: SUCCINYLCHOLINE CHLORIDE
     Indication: ALTERED STATE OF CONSCIOUSNESS
     Route: 065
  19. ZYRTEC [Suspect]
     Active Substance: CETIRIZINE HYDROCHLORIDE
     Indication: PRODUCT USED FOR UNKNOWN INDICATION
     Dosage: 150 MG TOTAL (10MG 15 TABLETES)
     Route: 048
     Dates: start: 20160115, end: 20160117
  20. THERALENE [Suspect]
     Active Substance: TRIMEPRAZINE
     Indication: PRODUCT USED FOR UNKNOWN INDICATION
     Dosage: 5 MG 43 TABLETS
     Route: 048
     Dates: start: 20160115, end: 20160117
  21. ATARAX [Suspect]
     Active Substance: HYDROXYZINE\HYDROXYZINE HYDROCHLORIDE
     Indication: PRODUCT USED FOR UNKNOWN INDICATION
     Dosage: 25 MG 21 TABLETS.
     Route: 048
     Dates: start: 20160115, end: 20160117
  22. VENLAFAXINE [Suspect]
     Active Substance: VENLAFAXINE HYDROCHLORIDE
     Indication: PRODUCT USED FOR UNKNOWN INDICATION
     Dosage: 5925 MG, (75MG 79 TABLETS).
     Route: 048
     Dates: start: 20160115, end: 20160117
  23. SALINE [Concomitant]
     Active Substance: SODIUM CHLORIDE
     Indication: HAEMODYNAMIC INSTABILITY
     Route: 065
  24. GARDENAL [Concomitant]
     Active Substance: PHENOBARBITAL
     Indication: STATUS EPILEPTICUS
     Dosage: LOADING DOSE
     Route: 065
  25. ASPIRINE [Suspect]
     Active Substance: ASPIRIN
     Indication: PRODUCT USED FOR UNKNOWN INDICATION
     Dosage: 1000MG, 14 TABLET
     Route: 048
     Dates: start: 20160114, end: 20160117
  26. VERATRAN [Suspect]
     Active Substance: CLOTIAZEPAM
     Indication: PRODUCT USED FOR UNKNOWN INDICATION
     Dosage: 90MG, TOTAL (10MG 9 TABLETS)
     Route: 048
     Dates: start: 20160115, end: 20160117
  27. ZOPICLONE [Suspect]
     Active Substance: ZOPICLONE
     Indication: PRODUCT USED FOR UNKNOWN INDICATION
     Dosage: 7.5MG 11 TABLETS
     Route: 048
     Dates: start: 20160115, end: 20160117
  28. RIVOTRIL [Concomitant]
     Active Substance: CLONAZEPAM
     Indication: GENERALISED TONIC-CLONIC SEIZURE
     Route: 042
  29. URBANYL [Concomitant]
     Active Substance: CLOBAZAM
     Indication: PRODUCT USED FOR UNKNOWN INDICATION
     Route: 065
  30. ALPRAZOLAM. [Suspect]
     Active Substance: ALPRAZOLAM
     Indication: PRODUCT USED FOR UNKNOWN INDICATION
     Dosage: 17 MG, TOTAL (0.25MG 68 TABLETS)
     Route: 048
     Dates: start: 20160115, end: 20160117
  31. KEPPRA [Suspect]
     Active Substance: LEVETIRACETAM
     Indication: PRODUCT USED FOR UNKNOWN INDICATION
     Dosage: 500 MG, 2X/DAY
     Route: 065
     Dates: start: 201601, end: 20160122

REACTIONS (10)
  - Seizure [Recovered/Resolved]
  - Generalised tonic-clonic seizure [Recovered/Resolved]
  - Electrocardiogram QT prolonged [Recovered/Resolved]
  - Status epilepticus [Recovered/Resolved]
  - Hepatocellular injury [Recovered/Resolved]
  - Toxicity to various agents [Recovered/Resolved]
  - Intentional overdose [Recovered/Resolved]
  - Coma [Recovered/Resolved]
  - Alcohol withdrawal syndrome [Recovered/Resolved]
  - Poisoning deliberate [Recovered/Resolved]

NARRATIVE: CASE EVENT DATE: 201601
